FAERS Safety Report 8452209-8 (Version None)
Quarter: 2012Q2

REPORT INFORMATION
  Report Type: 
  Country: None (occurrence: None)
  Receive Date: 20120620
  Receipt Date: 20120510
  Transmission Date: 20120825
  Serious: No
  Sender: FDA-Public Use
  Company Number: US-VERTEX PHARMACEUTICALS INC.-AE-2012-004772

PATIENT
  Sex: Female
  Weight: 59.928 kg

DRUGS (4)
  1. INCIVEK [Suspect]
     Indication: HEPATITIS C
     Route: 048
     Dates: start: 20120228
  2. PEGASYS [Concomitant]
     Indication: HEPATITIS C
     Dates: start: 20120228
  3. OMEPRAZOLE [Concomitant]
  4. RIBAVIRIN [Concomitant]
     Indication: HEPATITIS C
     Dates: start: 20120228

REACTIONS (15)
  - PALLOR [None]
  - RASH PRURITIC [None]
  - INAPPROPRIATE SCHEDULE OF DRUG ADMINISTRATION [None]
  - NAUSEA [None]
  - DEPRESSED MOOD [None]
  - INSOMNIA [None]
  - VOMITING [None]
  - ANAEMIA [None]
  - FATIGUE [None]
  - BONE PAIN [None]
  - BACK PAIN [None]
  - PRURITUS GENERALISED [None]
  - DIZZINESS [None]
  - HEADACHE [None]
  - ASTHENIA [None]
